FAERS Safety Report 9798750 (Version 2)
Quarter: 2015Q3

REPORT INFORMATION
  Report Type: Spontaneous
  Country: US (occurrence: US)
  Receive Date: 20140106
  Receipt Date: 20150806
  Transmission Date: 20151125
  Serious: No
  Sender: FDA-Public Use
  Company Number: US-GILEAD-2010-0030050

PATIENT
  Age: 65 Year
  Sex: Male
  Weight: 86.18 kg

DRUGS (17)
  1. LASIX [Concomitant]
     Active Substance: FUROSEMIDE
  2. LOVASTATIN. [Concomitant]
     Active Substance: LOVASTATIN
  3. ADVAIR HFA [Concomitant]
     Active Substance: FLUTICASONE PROPIONATE\SALMETEROL XINAFOATE
  4. PREVACID [Concomitant]
     Active Substance: LANSOPRAZOLE
  5. LEVAQUIN [Concomitant]
     Active Substance: LEVOFLOXACIN
  6. VENTOLIN [Concomitant]
     Active Substance: ALBUTEROL SULFATE
  7. LETAIRIS [Suspect]
     Active Substance: AMBRISENTAN
     Indication: PULMONARY ARTERIAL HYPERTENSION
     Route: 048
     Dates: start: 20090305
  8. COREG [Concomitant]
     Active Substance: CARVEDILOL
  9. GLUCOPHAGE [Concomitant]
     Active Substance: METFORMIN HYDROCHLORIDE
  10. SPIRIVA [Concomitant]
     Active Substance: TIOTROPIUM BROMIDE MONOHYDRATE
  11. CLARITIN [Concomitant]
     Active Substance: LORATADINE
  12. VIAGRA [Concomitant]
     Active Substance: SILDENAFIL CITRATE
  13. PRILOSEC [Concomitant]
     Active Substance: OMEPRAZOLE MAGNESIUM
  14. SINGULAIR [Concomitant]
     Active Substance: MONTELUKAST SODIUM
  15. TYLENOL [Concomitant]
     Active Substance: ACETAMINOPHEN
  16. ALBUTEROL. [Concomitant]
     Active Substance: ALBUTEROL
  17. PRINIVIL [Concomitant]
     Active Substance: LISINOPRIL

REACTIONS (1)
  - Peripheral swelling [Unknown]
